FAERS Safety Report 9921441 (Version 1)
Quarter: 2014Q1

REPORT INFORMATION
  Report Type: Spontaneous
  Country: US (occurrence: None)
  Receive Date: 20140221
  Receipt Date: 20140221
  Transmission Date: 20141002
  Serious: Yes (Other)
  Sender: FDA-Public Use
  Company Number: None

PATIENT
  Age: 58 Year
  Sex: Female

DRUGS (1)
  1. AVONEX 30 MCG BIOGEN [Suspect]
     Dosage: 30 MCG UD
     Route: 030
     Dates: start: 201402

REACTIONS (5)
  - Influenza like illness [None]
  - Pain [None]
  - Back pain [None]
  - Headache [None]
  - Toothache [None]
